FAERS Safety Report 6779697-7 (Version None)
Quarter: 2010Q2

REPORT INFORMATION
  Report Type: 
  Country: None (occurrence: None)
  Receive Date: 20100618
  Receipt Date: 20100607
  Transmission Date: 20101027
  Serious: Yes (Hospitalization, Other)
  Sender: FDA-Public Use
  Company Number: PHHY2009DE38418

PATIENT
  Age: 32 Year
  Sex: Female
  Weight: 54 kg

DRUGS (12)
  1. SANDIMMUNE [Suspect]
     Indication: RENAL TRANSPLANT
     Dosage: 200 MG, BID
     Route: 048
     Dates: start: 20080115
  2. SANDIMMUNE [Suspect]
     Dosage: 50 MG, BID
  3. CELLCEPT [Suspect]
     Indication: RENAL TRANSPLANT
     Dosage: 750 MG, BID
     Route: 048
     Dates: start: 20080115
  4. CELLCEPT [Suspect]
     Dosage: 500 MG, BID
     Dates: start: 20090808
  5. CIPRO [Suspect]
     Indication: URINARY TRACT INFECTION
     Dosage: 500 MG, BID
     Route: 048
     Dates: start: 20090807, end: 20090808
  6. ZIENAM [Suspect]
     Indication: ESCHERICHIA URINARY TRACT INFECTION
     Dosage: 0.5 G, TID
     Route: 042
     Dates: start: 20090808, end: 20090821
  7. DECORTIN [Concomitant]
     Indication: RENAL TRANSPLANT
     Dosage: 5MG
     Route: 048
     Dates: start: 20080115
  8. CALCIMAGON-D3 [Concomitant]
     Indication: OSTEOPOROSIS PROPHYLAXIS
     Dosage: 1 DF, BID
     Route: 048
     Dates: start: 20080101
  9. LEVOTHYROXINE SODIUM [Concomitant]
     Indication: HYPOTHYROIDISM
     Dosage: 25 MICROGRAM
     Route: 048
     Dates: start: 20030101
  10. LOCOL [Concomitant]
     Indication: CARDIOVASCULAR EVENT PROPHYLAXIS
     Dosage: 40 MG
     Route: 048
     Dates: start: 20080101
  11. PANTOZOL [Concomitant]
     Indication: PROPHYLAXIS AGAINST GASTROINTESTINAL ULCER
     Dosage: 40 MG
     Route: 048
     Dates: start: 20080101
  12. TOREM [Concomitant]
     Indication: HYPERTENSION
     Dosage: 2.5 MG
     Route: 048
     Dates: start: 20080101

REACTIONS (17)
  - ANURIA [None]
  - DIARRHOEA [None]
  - DYSURIA [None]
  - ESCHERICHIA INFECTION [None]
  - ESCHERICHIA URINARY TRACT INFECTION [None]
  - GASTROENTERITIS CLOSTRIDIAL [None]
  - HEART RATE INCREASED [None]
  - HYPOTENSION [None]
  - MICTURITION URGENCY [None]
  - NAUSEA [None]
  - PATHOGEN RESISTANCE [None]
  - POLLAKIURIA [None]
  - PYREXIA [None]
  - RENAL FAILURE ACUTE [None]
  - UROSEPSIS [None]
  - VESICOURETERIC REFLUX [None]
  - VOMITING [None]
